FAERS Safety Report 17907289 (Version 9)
Quarter: 2021Q2

REPORT INFORMATION
  Report Type: Report from Study
  Country: US (occurrence: US)
  Receive Date: 20200617
  Receipt Date: 20210630
  Transmission Date: 20210717
  Serious: Yes (Hospitalization, Other)
  Sender: FDA-Public Use
  Company Number: US-ASTELLAS-2020US019322

PATIENT
  Age: 74 Year
  Sex: Male

DRUGS (24)
  1. GARLIC. [Concomitant]
     Active Substance: GARLIC
     Indication: SUPPLEMENTATION THERAPY
     Route: 048
     Dates: start: 2000
  2. AMOXICILLIN. [Concomitant]
     Active Substance: AMOXICILLIN
     Indication: CELLULITIS
     Dosage: 500 MG, THRICE DAILY (10500 MG CUMULATIVE DOSE)
     Route: 065
     Dates: start: 20200516, end: 20200522
  3. ASG?22CE [Suspect]
     Active Substance: ENFORTUMAB VEDOTIN
     Indication: TRANSITIONAL CELL CARCINOMA
     Route: 042
     Dates: start: 20190116, end: 20200526
  4. ASG?22CE [Suspect]
     Active Substance: ENFORTUMAB VEDOTIN
     Route: 042
     Dates: start: 20200707, end: 20201222
  5. PEMBROLIZUMAB. [Suspect]
     Active Substance: PEMBROLIZUMAB
     Route: 042
     Dates: start: 20200707, end: 20201222
  6. VITAMIN D [Concomitant]
     Active Substance: VITAMIN D NOS
     Indication: VITAMIN SUPPLEMENTATION
     Route: 048
     Dates: start: 1995
  7. ACAI. [Concomitant]
     Active Substance: ACAI
     Indication: SUPPLEMENTATION THERAPY
     Route: 065
     Dates: start: 2012
  8. TYLENOL [Concomitant]
     Active Substance: ACETAMINOPHEN
     Indication: NECK PAIN
     Route: 048
     Dates: start: 1999
  9. EPSOM SALT [Concomitant]
     Active Substance: MAGNESIUM SULFATE
     Indication: CELLULITIS
     Dosage: UNK, AS NEEDED
     Route: 065
     Dates: start: 20200330
  10. MULTIVITAMIN [Concomitant]
     Active Substance: VITAMINS
     Indication: VITAMIN SUPPLEMENTATION
     Route: 065
     Dates: start: 2000
  11. GLUCOSAMINE + CHONDROITIN [Concomitant]
     Active Substance: CHONDROITIN SULFATE (BOVINE)\GLUCOSAMINE HYDROCHLORIDE
     Indication: SUPPLEMENTATION THERAPY
     Dosage: UNK UNK, ONCE DAILY (750/597 MG, QD)
     Route: 048
     Dates: start: 1995
  12. COENZYME Q10 [Concomitant]
     Active Substance: DIETARY SUPPLEMENT\UBIDECARENONE
     Indication: SUPPLEMENTATION THERAPY
     Route: 048
     Dates: start: 2012
  13. BETAMETHASONE. [Concomitant]
     Active Substance: BETAMETHASONE
     Indication: RASH
     Dosage: UNK UNK, TWICE DAILY (BID, PRN)
     Route: 061
     Dates: start: 20191025
  14. MAGNESIUM [Concomitant]
     Active Substance: MAGNESIUM
     Indication: MINERAL SUPPLEMENTATION
     Route: 048
     Dates: start: 1995
  15. ZYRTEC [Concomitant]
     Active Substance: CETIRIZINE HYDROCHLORIDE
     Indication: PRODUCT USED FOR UNKNOWN INDICATION
     Dosage: UNK UNK, UNKNOWN FREQ.
     Route: 065
  16. OMEGA 3 FISH OIL [Concomitant]
     Active Substance: FISH OIL\OMEGA-3 FATTY ACIDS
     Indication: SUPPLEMENTATION THERAPY
     Route: 048
     Dates: start: 2000
  17. ZINC. [Concomitant]
     Active Substance: ZINC
     Indication: PRODUCT USED FOR UNKNOWN INDICATION
     Route: 048
     Dates: start: 1995
  18. MYCOSTATIN [Concomitant]
     Active Substance: NYSTATIN
     Indication: STOMA CARE
     Dosage: UNK UNK, AS NEEDED (AS NECESSARY)
     Route: 065
     Dates: start: 2018
  19. PEMBROLIZUMAB. [Suspect]
     Active Substance: PEMBROLIZUMAB
     Indication: TRANSITIONAL CELL CARCINOMA
     Route: 042
     Dates: start: 20190116, end: 20200526
  20. IMODIUM [Concomitant]
     Active Substance: LOPERAMIDE HYDROCHLORIDE
     Indication: DIARRHOEA
     Route: 048
     Dates: start: 20190128
  21. LIDEX [Concomitant]
     Active Substance: FLUOCINONIDE
     Indication: RASH PRURITIC
     Dosage: 0.5 %, TWICE DAILY
     Route: 061
  22. ATARAX [Concomitant]
     Active Substance: HYDROXYZINE HYDROCHLORIDE
     Indication: PRURITUS
     Dosage: 250 MG, AT BEDTIME (QHS)
     Route: 048
     Dates: start: 20191020
  23. ARTIFICIAL TEARS [Concomitant]
     Active Substance: GLYCERIN\HYPROMELLOSES\POLYETHYLENE GLYCOL 400
     Indication: PRODUCT USED FOR UNKNOWN INDICATION
     Dosage: 1 DROPS, OTHER (1 GTT, Q4HR)
     Route: 047
  24. GABAPENTIN. [Concomitant]
     Active Substance: GABAPENTIN
     Indication: NEUROPATHY PERIPHERAL
     Route: 048
     Dates: start: 20200305

REACTIONS (1)
  - Toxic epidermal necrolysis [Recovered/Resolved]

NARRATIVE: CASE EVENT DATE: 20200530
